FAERS Safety Report 20455926 (Version 1)
Quarter: 2022Q1

REPORT INFORMATION
  Report Type: Spontaneous
  Country: US (occurrence: None)
  Receive Date: 20220210
  Receipt Date: 20220210
  Transmission Date: 20220423
  Serious: No
  Sender: FDA-Public Use
  Company Number: None

PATIENT
  Age: 65 Year
  Sex: Male
  Weight: 225 kg

DRUGS (1)
  1. PREGABALIN [Suspect]
     Active Substance: PREGABALIN
     Indication: Pain
     Dosage: 50 MG TID PO?
     Route: 048
     Dates: start: 20211001, end: 20211021

REACTIONS (5)
  - Agitation [None]
  - Rash [None]
  - Mania [None]
  - Delirium [None]
  - Drug intolerance [None]

NARRATIVE: CASE EVENT DATE: 20211021
